FAERS Safety Report 20744552 (Version 1)
Quarter: 2022Q2

REPORT INFORMATION
  Report Type: Spontaneous
  Country: US (occurrence: US)
  Receive Date: 20220425
  Receipt Date: 20220425
  Transmission Date: 20220721
  Serious: No
  Sender: FDA-Public Use
  Company Number: US-ALKERMES INC.-ALK-2022-001930

PATIENT
  Sex: Male

DRUGS (1)
  1. VIVITROL [Suspect]
     Active Substance: NALTREXONE
     Indication: Alcoholism
     Dosage: 380 MILLIGRAM, QMO
     Route: 030

REACTIONS (9)
  - Product administered at inappropriate site [Recovered/Resolved]
  - Mobility decreased [Not Recovered/Not Resolved]
  - Injury associated with device [Recovered/Resolved]
  - Injection site reaction [Not Recovered/Not Resolved]
  - Injection site rash [Recovered/Resolved]
  - Injection site pain [Not Recovered/Not Resolved]
  - Injection site erythema [Unknown]
  - Injection site swelling [Unknown]
  - Injection site infection [Not Recovered/Not Resolved]
